FAERS Safety Report 4906117-7 (Version None)
Quarter: 2006Q1

REPORT INFORMATION
  Report Type: 
  Country: None (occurrence: None)
  Receive Date: 20060209
  Receipt Date: 20060206
  Transmission Date: 20060701
  Serious: Yes (Congenital Anomaly, Other)
  Sender: FDA-Public Use
  Company Number: FI-RB-2755-2006

PATIENT
  Age: 23 Year
  Sex: Female

DRUGS (7)
  1. BUPRENORPHINE HCL [Suspect]
     Route: 060
  2. BUPRENORPHINE HCL [Suspect]
     Route: 060
  3. BUPRENORPHINE HCL [Suspect]
     Route: 060
  4. BUPRENORPHINE HCL [Suspect]
     Route: 060
  5. PROMAZINE HYDROCHLORIDE [Suspect]
     Indication: DRUG USE FOR UNKNOWN INDICATION
     Dosage: DOSAGE UNKNOWN
     Route: 065
  6. METRONIDAZOLE [Suspect]
     Indication: DRUG USE FOR UNKNOWN INDICATION
     Dosage: DOSAGE UNKNOWN
     Route: 065
  7. PIVMECILLINAM [Suspect]
     Indication: DRUG USE FOR UNKNOWN INDICATION
     Dosage: DOSAGE UNKNOWN
     Route: 065

REACTIONS (10)
  - ABORTION INDUCED [None]
  - ADRENAL HAEMORRHAGE [None]
  - AMNIOTIC FLUID VOLUME DECREASED [None]
  - CONGENITAL CYSTIC KIDNEY DISEASE [None]
  - DRUG EXPOSURE DURING PREGNANCY [None]
  - FATIGUE [None]
  - PULMONARY HYPOPLASIA [None]
  - RENAL DYSPLASIA [None]
  - SUBARACHNOID HAEMORRHAGE [None]
  - WEIGHT GAIN POOR [None]
